FAERS Safety Report 25064117 (Version 2)
Quarter: 2025Q1

REPORT INFORMATION
  Report Type: Spontaneous
  Country: US (occurrence: US)
  Receive Date: 20250311
  Receipt Date: 20250317
  Transmission Date: 20250409
  Serious: No
  Sender: CSL BEHRING
  Company Number: US-BEH-2025197828

PATIENT
  Age: 57 Year
  Sex: Female

DRUGS (1)
  1. HIZENTRA [Suspect]
     Active Substance: HUMAN IMMUNOGLOBULIN G
     Indication: Product used for unknown indication
     Dosage: 4 G, QW
     Route: 058
     Dates: start: 201908

REACTIONS (1)
  - Pruritus [Unknown]
